FAERS Safety Report 9536915 (Version 1)
Quarter: 2013Q3

REPORT INFORMATION
  Report Type: Spontaneous
  Country: NL (occurrence: NL)
  Receive Date: 20130919
  Receipt Date: 20130919
  Transmission Date: 20140515
  Serious: Yes (Life-Threatening)
  Sender: FDA-Public Use
  Company Number: NL-NOVOPROD-387638

PATIENT
  Age: 74 Year
  Sex: Female
  Weight: 100 kg

DRUGS (10)
  1. VICTOZA [Suspect]
     Indication: DIABETES MELLITUS
     Dosage: 1.2 MG, SINGLE
     Route: 058
     Dates: start: 20121201
  2. VICTOZA [Suspect]
     Dosage: 1.8 MG, QD
     Route: 058
  3. ASCAL CARDIO [Concomitant]
     Dosage: 100 MG, SINGLE (1 TIMES PER DAY)
     Route: 065
  4. ATENOLOL [Concomitant]
     Dosage: 50 MG, SINGLE (1 TIMES PER 1 DAYS 50 MG)
     Route: 048
     Dates: start: 2012
  5. IRBESARTAN [Concomitant]
     Dosage: 300 MG, SINGLE
     Route: 048
     Dates: start: 2012
  6. RANITIDINE [Concomitant]
     Dosage: 150 MG, SINGLE
     Route: 048
     Dates: start: 2012
  7. SIMVASTATIN [Concomitant]
     Dosage: 40 MG, SINGLE
     Route: 065
     Dates: start: 2012
  8. ETALPHA [Concomitant]
     Dosage: 0.25 ?G, SINGLE
     Route: 048
     Dates: start: 2012
  9. ALFACALCIDOL [Concomitant]
     Dosage: UNK
     Route: 065
  10. CARBASALATE CALCIUM [Concomitant]
     Dosage: UNK
     Route: 065

REACTIONS (1)
  - Pancreatic carcinoma metastatic [Not Recovered/Not Resolved]
